FAERS Safety Report 6589288-9 (Version None)
Quarter: 2010Q1

REPORT INFORMATION
  Report Type: 
  Country: None (occurrence: None)
  Receive Date: 20100218
  Receipt Date: 20100210
  Transmission Date: 20100710
  Serious: Yes (Other)
  Sender: FDA-Public Use
  Company Number: US-GILEAD-2010-0027015

PATIENT
  Sex: Male
  Weight: 102.15 kg

DRUGS (11)
  1. LETAIRIS [Suspect]
     Indication: PULMONARY ARTERIAL HYPERTENSION
     Route: 048
     Dates: start: 20091117
  2. ZOCOR [Concomitant]
  3. COUMADIN [Concomitant]
  4. MICARDIS [Concomitant]
  5. REVATIO [Concomitant]
  6. ADVAIR DISKUS 100/50 [Concomitant]
  7. REQUIP [Concomitant]
  8. LEVAQUIN [Concomitant]
  9. FINASTERIDE [Concomitant]
  10. LEXAPRO [Concomitant]
  11. FLOMAX [Concomitant]

REACTIONS (1)
  - LUNG OPERATION [None]
